FAERS Safety Report 14788575 (Version 1)
Quarter: 2018Q2

REPORT INFORMATION
  Report Type: Spontaneous
  Country: US (occurrence: US)
  Receive Date: 20180423
  Receipt Date: 20180423
  Transmission Date: 20180711
  Serious: Yes (Hospitalization, Other)
  Sender: FDA-Public Use
  Company Number: US-STRIDES ARCOLAB LIMITED-2018SP003018

PATIENT

DRUGS (2)
  1. ACETYLSALICYLIC ACID W/CAFFEINE MONOHYDRATE/P [Suspect]
     Active Substance: ACETAMINOPHEN\ASPIRIN\CAFFEINE
     Indication: HEADACHE
     Dosage: UNKNOWN
     Route: 065
  2. IBUPROFEN. [Suspect]
     Active Substance: IBUPROFEN
     Indication: HEADACHE
     Dosage: UNKNOWN
     Route: 065

REACTIONS (9)
  - Oedema mucosal [Recovered/Resolved]
  - Duodenal ulcer [Recovered/Resolved]
  - Abdominal pain upper [Recovered/Resolved]
  - Nausea [Recovered/Resolved]
  - Vomiting [Recovered/Resolved]
  - Feeding intolerance [Recovered/Resolved]
  - Obstruction gastric [Recovered/Resolved]
  - Duodenal stenosis [Recovered/Resolved]
  - Gastrointestinal mucosa hyperaemia [Recovered/Resolved]
